FAERS Safety Report 16688903 (Version 1)
Quarter: 2019Q4

REPORT INFORMATION
  Report Type: Spontaneous
  Country: PR (occurrence: PR)
  Receive Date: 20190809
  Receipt Date: 20190809
  Transmission Date: 20200122
  Serious: No
  Sender: FDA-Public Use
  Company Number: None

PATIENT
  Age: 32 Year
  Sex: Female
  Weight: 54 kg

DRUGS (1)
  1. TEFLARO [Suspect]
     Active Substance: CEFTAROLINE FOSAMIL
     Indication: DECUBITUS ULCER
     Route: 041
     Dates: start: 20190522, end: 20190616

REACTIONS (4)
  - Discomfort [None]
  - Therapy cessation [None]
  - Face oedema [None]
  - Rash [None]

NARRATIVE: CASE EVENT DATE: 20190616
